FAERS Safety Report 11495849 (Version 2)
Quarter: 2015Q3

REPORT INFORMATION
  Report Type: Spontaneous
  Country: MA (occurrence: MA)
  Receive Date: 20150911
  Receipt Date: 20150928
  Transmission Date: 20151125
  Serious: Yes (Hospitalization)
  Sender: FDA-Public Use
  Company Number: MA-JNJFOC-20150905276

PATIENT
  Age: 75 Year
  Sex: Male
  Weight: 74 kg

DRUGS (3)
  1. ZYTIGA [Suspect]
     Active Substance: ABIRATERONE ACETATE
     Indication: PROSTATE CANCER METASTATIC
     Dosage: DOSE REDUCED TO HALF
     Route: 048
  2. PREDNISOLONE. [Concomitant]
     Active Substance: PREDNISOLONE
     Indication: PRODUCT USED FOR UNKNOWN INDICATION
     Route: 048
     Dates: start: 20150815, end: 20150830
  3. ZYTIGA [Suspect]
     Active Substance: ABIRATERONE ACETATE
     Indication: PROSTATE CANCER METASTATIC
     Dosage: 4 TABLETS A DAY
     Route: 048
     Dates: start: 20150815, end: 20150830

REACTIONS (7)
  - Fatigue [Recovered/Resolved]
  - Hyperglycaemia [Recovered/Resolved]
  - Hyperkalaemia [Recovered/Resolved]
  - Muscle spasms [Recovered/Resolved]
  - Hyponatraemia [Recovered/Resolved]
  - Asthenia [Recovered/Resolved]
  - Vomiting [Recovered/Resolved]

NARRATIVE: CASE EVENT DATE: 201508
